FAERS Safety Report 15385785 (Version 1)
Quarter: 2018Q3

REPORT INFORMATION
  Report Type: Spontaneous
  Country: US (occurrence: US)
  Receive Date: 20180914
  Receipt Date: 20180914
  Transmission Date: 20181010
  Serious: Yes (Other)
  Sender: FDA-Public Use
  Company Number: US-PFIZER INC-2018369744

PATIENT
  Age: 36 Year
  Sex: Male
  Weight: 66 kg

DRUGS (2)
  1. VIAGRA [Suspect]
     Active Substance: SILDENAFIL CITRATE
     Indication: PENIS DISORDER
     Dosage: 100 MG, 2 OR THREE TIMES A DAY
     Route: 048
     Dates: start: 201808
  2. OLANZAPINE. [Concomitant]
     Active Substance: OLANZAPINE
     Dosage: UNK

REACTIONS (4)
  - Penile swelling [Unknown]
  - Phimosis [Unknown]
  - Overdose [Unknown]
  - Discomfort [Unknown]
